FAERS Safety Report 8308238-8 (Version None)
Quarter: 2012Q2

REPORT INFORMATION
  Report Type: 
  Country: None (occurrence: None)
  Receive Date: 20120424
  Receipt Date: 20120410
  Transmission Date: 20120825
  Serious: Yes (Death)
  Sender: FDA-Public Use
  Company Number: FR-WATSON-2012-02851

PATIENT
  Age: 18 Year
  Sex: Female

DRUGS (4)
  1. METOCLOPRAMIDE INJECTION [Suspect]
     Indication: PRODUCT USED FOR UNKNOWN INDICATION
  2. HYDROXYZINE PAMOATE [Suspect]
     Indication: PRODUCT USED FOR UNKNOWN INDICATION
  3. ALCOHOL [Suspect]
     Indication: PRODUCT USED FOR UNKNOWN INDICATION
  4. TRIMEBUTINE (UNKNOWN) [Suspect]
     Indication: PRODUCT USED FOR UNKNOWN INDICATION

REACTIONS (3)
  - POISONING [None]
  - ASPHYXIA [None]
  - LIP OEDEMA [None]
